FAERS Safety Report 25867935 (Version 1)
Quarter: 2025Q4

REPORT INFORMATION
  Report Type: Spontaneous
  Country: US (occurrence: US)
  Receive Date: 20251001
  Receipt Date: 20251001
  Transmission Date: 20260117
  Serious: Yes (Other)
  Sender: AUROBINDO
  Company Number: US-AUROBINDO-AUR-APL-2025-048863

PATIENT
  Age: 72 Year
  Sex: Female

DRUGS (6)
  1. WARFARIN [Suspect]
     Active Substance: WARFARIN
     Indication: Mitral valve stenosis
     Dosage: MAINTAIN INR GREATER THAN 2.5
     Route: 065
  2. WARFARIN [Suspect]
     Active Substance: WARFARIN
     Indication: Atrial flutter
  3. WARFARIN [Suspect]
     Active Substance: WARFARIN
     Indication: Thrombosis prophylaxis
  4. SOTALOL [Concomitant]
     Active Substance: SOTALOL
     Indication: Mitral valve stenosis
     Dosage: UNK
     Route: 065
  5. SOTALOL [Concomitant]
     Active Substance: SOTALOL
     Indication: Atrial flutter
  6. SOTALOL [Concomitant]
     Active Substance: SOTALOL
     Indication: Thrombosis prophylaxis

REACTIONS (1)
  - Drug ineffective [Unknown]
